FAERS Safety Report 20481766 (Version 1)
Quarter: 2022Q1

REPORT INFORMATION
  Report Type: Report from Study
  Country: US (occurrence: US)
  Receive Date: 20220216
  Receipt Date: 20220216
  Transmission Date: 20220424
  Serious: Yes (Hospitalization)
  Sender: FDA-Public Use
  Company Number: US-SEATTLE GENETICS-2022SGN01221

PATIENT
  Age: 13 Year
  Sex: Female

DRUGS (6)
  1. BRENTUXIMAB VEDOTIN [Suspect]
     Active Substance: BRENTUXIMAB VEDOTIN
     Indication: Hodgkin^s disease
     Dosage: 1.8 MG/KG, ON DAY 1
     Route: 042
     Dates: start: 20161013, end: 20161013
  2. DOXORUBICIN [Suspect]
     Active Substance: DOXORUBICIN
     Indication: Hodgkin^s disease
     Dosage: 25 MG/M2, ON DAYS 1 AND 2
     Route: 042
     Dates: start: 20161013
  3. VINCRISTINE [Suspect]
     Active Substance: VINCRISTINE
     Indication: Hodgkin^s disease
     Dosage: 1.4 MG/M2 ON DAY 8
     Route: 042
  4. ETOPOSIDE [Suspect]
     Active Substance: ETOPOSIDE
     Indication: Hodgkin^s disease
     Dosage: 125 MG/M2, ON DAYS 1-3
     Route: 042
     Dates: start: 20161013
  5. PREDNISONE [Suspect]
     Active Substance: PREDNISONE
     Indication: Hodgkin^s disease
     Dosage: 20 MG, BID ON DAYS 1-7
     Route: 048
     Dates: start: 20161013
  6. CYCLOPHOSPHAMIDE [Suspect]
     Active Substance: CYCLOPHOSPHAMIDE
     Indication: Hodgkin^s disease
     Dosage: 600 MG/M2, ON DAYS 1-2
     Route: 042
     Dates: start: 20161013

REACTIONS (11)
  - Colitis [Recovering/Resolving]
  - White blood cell count decreased [Unknown]
  - Oral pain [Unknown]
  - Neutrophil count decreased [Unknown]
  - Platelet count decreased [Unknown]
  - Pain [Unknown]
  - Stomatitis [Unknown]
  - Myalgia [Unknown]
  - Anaemia [Unknown]
  - Chills [Unknown]
  - Nausea [Unknown]

NARRATIVE: CASE EVENT DATE: 20161022
